FAERS Safety Report 8577498 (Version 3)
Quarter: 2012Q4

REPORT INFORMATION
  Report Type: 
  Country: US (occurrence: US)
  Receive Date: 20120524
  Receipt Date: 20121128
  Transmission Date: 20130627
  Serious: Yes (Hospitalization)
  Sender: FDA-Public Use
  Company Number: US-UCBSA-057568

PATIENT
  Age: 55 Year
  Sex: Female

DRUGS (3)
  1. CIMZIA [Suspect]
     Indication: CROHN^S DISEASE
     Route: 058
     Dates: start: 201111
  2. IMURAN [Concomitant]
     Indication: CROHN^S DISEASE
     Route: 048
     Dates: start: 2007
  3. TYLENOL 3 [Concomitant]
     Indication: ANTIDIARRHOEAL SUPPORTIVE CARE
     Dosage: 1 TAB AM AND 1 TAB  PM 2 PRN
     Route: 048
     Dates: start: 20121001

REACTIONS (5)
  - Intestinal resection [Unknown]
  - Abscess [Recovered/Resolved]
  - Diarrhoea [Not Recovered/Not Resolved]
  - Chromaturia [Recovered/Resolved]
  - Vulvovaginal discomfort [Recovered/Resolved]
